FAERS Safety Report 14554442 (Version 1)
Quarter: 2018Q1

REPORT INFORMATION
  Report Type: Report from Study
  Country: US (occurrence: US)
  Receive Date: 20180220
  Receipt Date: 20180220
  Transmission Date: 20180509
  Serious: Yes (Hospitalization)
  Sender: FDA-Public Use
  Company Number: PHHY2018US020518

PATIENT
  Age: 42 Year
  Sex: Female
  Weight: 112.6 kg

DRUGS (4)
  1. ZOFRAN [Concomitant]
     Active Substance: ONDANSETRON HYDROCHLORIDE
     Indication: NAUSEA
     Dosage: 2 MG/ML, UNK
     Route: 065
     Dates: start: 20180116
  2. GILENYA [Suspect]
     Active Substance: FINGOLIMOD HYDROCHLORIDE
     Indication: MULTIPLE SCLEROSIS
     Dosage: UNK
     Route: 065
     Dates: start: 20171226, end: 20180101
  3. GLUCAGON. [Concomitant]
     Active Substance: GLUCAGON
     Indication: BLOOD GLUCOSE ABNORMAL
     Dosage: 1 DF, UNK (1 PUSH ONCE)
     Route: 042
     Dates: start: 20180115
  4. MORPHINE [Concomitant]
     Active Substance: MORPHINE
     Indication: PAIN
     Dosage: 1 ML, EVERY 30 MIN
     Route: 065
     Dates: start: 20180116

REACTIONS (3)
  - Dysphagia [Not Recovered/Not Resolved]
  - Pharyngitis [Recovered/Resolved]
  - Sensation of foreign body [Recovered/Resolved]

NARRATIVE: CASE EVENT DATE: 20180115
